FAERS Safety Report 23932711 (Version 2)
Quarter: 2024Q4

REPORT INFORMATION
  Report Type: Spontaneous
  Country: GB (occurrence: GB)
  Receive Date: 20240603
  Receipt Date: 20241122
  Transmission Date: 20250114
  Serious: No
  Sender: PFIZER
  Company Number: GB-PFIZER INC-PV202400070477

PATIENT
  Age: 15 Year
  Sex: Male

DRUGS (1)
  1. GENOTROPIN [Suspect]
     Active Substance: SOMATROPIN
     Dosage: 1.8 MG, 1X/DAY
     Route: 058

REACTIONS (3)
  - Device breakage [Unknown]
  - Device mechanical issue [Unknown]
  - Drug dose omission by device [Unknown]
